FAERS Safety Report 11394760 (Version 2)
Quarter: 2015Q3

REPORT INFORMATION
  Report Type: Report from Study
  Country: DE (occurrence: DE)
  Receive Date: 20150819
  Receipt Date: 20150819
  Transmission Date: 20151125
  Serious: No
  Sender: FDA-Public Use
  Company Number: DE-UCBSA-2015025752

PATIENT
  Sex: Female
  Weight: 50.5 kg

DRUGS (2)
  1. BLINDED *CARBAMAZEPINE [Suspect]
     Active Substance: CARBAMAZEPINE
     Indication: EPILEPSY
     Dosage: LACOSAMIDE 100 MG TWICE DAILY OR CARBAMAZEPINE 200 MG TWICE DAILY
     Route: 048
     Dates: start: 20120312
  2. BLINDED LACOSAMIDE EP [Suspect]
     Active Substance: LACOSAMIDE
     Indication: EPILEPSY
     Dosage: LACOSAMIDE 100 MG TWICE DAILY OR CARBAMAZEPINE 200 MG TWICE DAILY
     Route: 048
     Dates: start: 20120312

REACTIONS (1)
  - Syncope [Recovered/Resolved]

NARRATIVE: CASE EVENT DATE: 201205
